FAERS Safety Report 20198820 (Version 2)
Quarter: 2021Q4

REPORT INFORMATION
  Report Type: Spontaneous
  Country: AU (occurrence: None)
  Receive Date: 20211217
  Receipt Date: 20211220
  Transmission Date: 20220303
  Serious: Yes (Hospitalization, Other)
  Sender: FDA-Public Use
  Company Number: AU-ROCHE-2973397

PATIENT
  Sex: Male

DRUGS (57)
  1. RITUXIMAB [Suspect]
     Active Substance: RITUXIMAB
     Indication: Diffuse large B-cell lymphoma
     Dosage: RCHOP, C1
     Route: 065
     Dates: start: 20180405
  2. RITUXIMAB [Suspect]
     Active Substance: RITUXIMAB
     Dosage: RCHOP, C2
     Route: 065
     Dates: start: 20180426
  3. RITUXIMAB [Suspect]
     Active Substance: RITUXIMAB
     Dosage: RCHOP, C3
     Route: 065
     Dates: start: 20180517
  4. RITUXIMAB [Suspect]
     Active Substance: RITUXIMAB
     Dosage: RCHOP, C4
     Route: 065
     Dates: start: 20180607
  5. RITUXIMAB [Suspect]
     Active Substance: RITUXIMAB
     Dosage: RCHOP, C5, MID TREATMENT PET 29.06.2018 SKG
     Route: 065
     Dates: start: 20180628
  6. RITUXIMAB [Suspect]
     Active Substance: RITUXIMAB
     Dosage: RCHOP, C6
     Route: 065
     Dates: start: 20180628
  7. RITUXIMAB [Suspect]
     Active Substance: RITUXIMAB
     Dosage: RGDP, C1
     Route: 065
     Dates: start: 20191106
  8. RITUXIMAB [Suspect]
     Active Substance: RITUXIMAB
     Dosage: RGDP, C2
     Route: 065
     Dates: start: 20191204
  9. CYCLOPHOSPHAMIDE [Suspect]
     Active Substance: CYCLOPHOSPHAMIDE
     Indication: Diffuse large B-cell lymphoma
     Dosage: RCHOP, C1
     Route: 065
     Dates: start: 20180405
  10. CYCLOPHOSPHAMIDE [Suspect]
     Active Substance: CYCLOPHOSPHAMIDE
     Dosage: RCHOP, C2
     Route: 065
     Dates: start: 20180426
  11. CYCLOPHOSPHAMIDE [Suspect]
     Active Substance: CYCLOPHOSPHAMIDE
     Dosage: RCHOP, C3
     Route: 065
     Dates: start: 20180517
  12. CYCLOPHOSPHAMIDE [Suspect]
     Active Substance: CYCLOPHOSPHAMIDE
     Dosage: RCHOP, C4
     Route: 065
     Dates: start: 20180607
  13. CYCLOPHOSPHAMIDE [Suspect]
     Active Substance: CYCLOPHOSPHAMIDE
     Dosage: RCHOP, C5
     Route: 065
     Dates: start: 20180628
  14. CYCLOPHOSPHAMIDE [Suspect]
     Active Substance: CYCLOPHOSPHAMIDE
     Dosage: RCHOP, C6
     Route: 065
     Dates: start: 20180719
  15. DOXORUBICIN [Suspect]
     Active Substance: DOXORUBICIN
     Indication: Diffuse large B-cell lymphoma
     Dosage: RCHOP, C1
     Route: 065
     Dates: start: 20180405
  16. DOXORUBICIN [Suspect]
     Active Substance: DOXORUBICIN
     Dosage: RCHOP, C2
     Route: 065
     Dates: start: 20180426
  17. DOXORUBICIN [Suspect]
     Active Substance: DOXORUBICIN
     Dosage: RCHOP, C3
     Route: 065
     Dates: start: 20180517
  18. DOXORUBICIN [Suspect]
     Active Substance: DOXORUBICIN
     Dosage: RCHOP, C4
     Route: 065
     Dates: start: 20180607
  19. DOXORUBICIN [Suspect]
     Active Substance: DOXORUBICIN
     Dosage: RCHOP, C5
     Route: 065
     Dates: start: 20180628
  20. DOXORUBICIN [Suspect]
     Active Substance: DOXORUBICIN
     Dosage: RCHOP, C6
     Route: 065
     Dates: start: 20180719
  21. VINCRISTINE [Suspect]
     Active Substance: VINCRISTINE
     Indication: Diffuse large B-cell lymphoma
     Dosage: RCHOP, C1
     Route: 065
     Dates: start: 20180405
  22. VINCRISTINE [Suspect]
     Active Substance: VINCRISTINE
     Dosage: RCHOP, C2
     Route: 065
     Dates: start: 20180426
  23. VINCRISTINE [Suspect]
     Active Substance: VINCRISTINE
     Dosage: RCHOP, C3
     Route: 065
     Dates: start: 20180517
  24. VINCRISTINE [Suspect]
     Active Substance: VINCRISTINE
     Dosage: RCHOP, C4
     Route: 065
     Dates: start: 20180607
  25. VINCRISTINE [Suspect]
     Active Substance: VINCRISTINE
     Dosage: RCHOP, C5
     Route: 065
     Dates: start: 20180628
  26. VINCRISTINE [Suspect]
     Active Substance: VINCRISTINE
     Dosage: RCHOP, C6
     Route: 065
     Dates: start: 20180719
  27. PREDNISOLONE [Suspect]
     Active Substance: PREDNISOLONE
     Indication: Diffuse large B-cell lymphoma
     Dosage: RCHOP, C1
     Route: 065
     Dates: start: 20180319
  28. PREDNISOLONE [Suspect]
     Active Substance: PREDNISOLONE
     Dosage: RCHOP, C2
     Route: 065
     Dates: start: 20180426
  29. PREDNISOLONE [Suspect]
     Active Substance: PREDNISOLONE
     Dosage: RCHOP, C3
     Route: 065
     Dates: start: 20180517
  30. PREDNISOLONE [Suspect]
     Active Substance: PREDNISOLONE
     Dosage: RCHOP, C4
     Route: 065
     Dates: start: 20180607
  31. PREDNISOLONE [Suspect]
     Active Substance: PREDNISOLONE
     Dosage: RCHOP, C5
     Route: 065
     Dates: start: 20180628
  32. PREDNISOLONE [Suspect]
     Active Substance: PREDNISOLONE
     Dosage: RCHOP, C6
     Route: 065
     Dates: start: 20180719
  33. IFOSFAMIDE [Suspect]
     Active Substance: IFOSFAMIDE
     Indication: Diffuse large B-cell lymphoma
     Dosage: ICE C1 D1
     Route: 065
     Dates: start: 20210216
  34. IFOSFAMIDE [Suspect]
     Active Substance: IFOSFAMIDE
     Dosage: ICE C1 D2
     Route: 065
     Dates: start: 20210217
  35. IFOSFAMIDE [Suspect]
     Active Substance: IFOSFAMIDE
     Dosage: ICE C1 D3
     Route: 065
     Dates: start: 20210218
  36. CARBOPLATIN [Suspect]
     Active Substance: CARBOPLATIN
     Indication: Diffuse large B-cell lymphoma
     Dosage: ICE C1 D1
     Route: 065
     Dates: start: 20210216
  37. CARBOPLATIN [Suspect]
     Active Substance: CARBOPLATIN
     Dosage: ICE C1 D2
     Route: 065
     Dates: start: 20210217
  38. CARBOPLATIN [Suspect]
     Active Substance: CARBOPLATIN
     Dosage: ICE C1 D3
     Route: 065
     Dates: start: 20210218
  39. ETOPOSIDE [Suspect]
     Active Substance: ETOPOSIDE
     Indication: Diffuse large B-cell lymphoma
     Dosage: ICE C1 D1
     Route: 065
     Dates: start: 20210216
  40. ETOPOSIDE [Suspect]
     Active Substance: ETOPOSIDE
     Dosage: ICE C1 D2
     Route: 065
     Dates: start: 20210217
  41. ETOPOSIDE [Suspect]
     Active Substance: ETOPOSIDE
     Dosage: ICE C1 D3
     Route: 065
     Dates: start: 20210218
  42. LENALIDOMIDE [Suspect]
     Active Substance: LENALIDOMIDE
     Indication: Diffuse large B-cell lymphoma
     Route: 065
     Dates: start: 20210714, end: 20211101
  43. CARMUSTINE [Suspect]
     Active Substance: CARMUSTINE
     Indication: Diffuse large B-cell lymphoma
     Route: 065
  44. MELPHALAN [Suspect]
     Active Substance: MELPHALAN
     Indication: Diffuse large B-cell lymphoma
     Route: 065
  45. CYTARABINE [Suspect]
     Active Substance: CYTARABINE
     Indication: Diffuse large B-cell lymphoma
     Route: 065
  46. GEMCITABINE [Suspect]
     Active Substance: GEMCITABINE
     Indication: Diffuse large B-cell lymphoma
     Dosage: RGDP, C1
     Route: 065
     Dates: start: 20191106
  47. GEMCITABINE [Suspect]
     Active Substance: GEMCITABINE
     Dosage: RGDP C2
     Route: 065
     Dates: start: 20191204
  48. CISPLATIN [Suspect]
     Active Substance: CISPLATIN
     Indication: Diffuse large B-cell lymphoma
     Dosage: RGDP C1
     Route: 065
     Dates: start: 20191106
  49. CISPLATIN [Suspect]
     Active Substance: CISPLATIN
     Dosage: RGDP C2
     Route: 065
     Dates: start: 20191204
  50. DEXAMETHASONE [Suspect]
     Active Substance: DEXAMETHASONE
     Indication: Diffuse large B-cell lymphoma
     Dosage: RGDP C1
     Route: 065
     Dates: start: 20191106
  51. DEXAMETHASONE [Suspect]
     Active Substance: DEXAMETHASONE
     Dosage: RGDP C2
     Route: 065
     Dates: start: 20191204
  52. PENTAMIDINE [Concomitant]
     Active Substance: PENTAMIDINE
     Indication: Diffuse large B-cell lymphoma
  53. MAGNESIUM [Concomitant]
     Active Substance: MAGNESIUM
     Indication: Diffuse large B-cell lymphoma
  54. VALACYCLOVIR HYDROCHLORIDE [Concomitant]
     Active Substance: VALACYCLOVIR HYDROCHLORIDE
     Indication: Diffuse large B-cell lymphoma
  55. PANTOPRAZOLE [Concomitant]
     Active Substance: PANTOPRAZOLE
     Indication: Diffuse large B-cell lymphoma
  56. OXYCODONE [Concomitant]
     Active Substance: OXYCODONE
     Indication: Diffuse large B-cell lymphoma
  57. PANADOL [Concomitant]
     Active Substance: ACETAMINOPHEN
     Indication: Diffuse large B-cell lymphoma

REACTIONS (8)
  - Pyrexia [Unknown]
  - Disease progression [Unknown]
  - Drug ineffective [Unknown]
  - Thrombocytopenia [Unknown]
  - Bone marrow disorder [Unknown]
  - Myelosuppression [Unknown]
  - Pancytopenia [Unknown]
  - Cytopenia [Unknown]
